FAERS Safety Report 4892181-0 (Version None)
Quarter: 2006Q1

REPORT INFORMATION
  Report Type: 
  Country: None (occurrence: None)
  Receive Date: 20060126
  Receipt Date: 20060116
  Transmission Date: 20060701
  Serious: Yes (Hospitalization, Other)
  Sender: FDA-Public Use
  Company Number: US-AMGEN-US162790

PATIENT
  Sex: Male

DRUGS (1)
  1. EPOGEN [Suspect]
     Indication: DIALYSIS
     Route: 042
     Dates: start: 20020101, end: 20051224

REACTIONS (3)
  - ANAEMIA [None]
  - MULTIPLE MYELOMA [None]
  - THERAPEUTIC RESPONSE DECREASED [None]
